FAERS Safety Report 23852993 (Version 8)
Quarter: 2024Q4

REPORT INFORMATION
  Report Type: Spontaneous
  Country: US (occurrence: US)
  Receive Date: 20240514
  Receipt Date: 20241023
  Transmission Date: 20250115
  Serious: No
  Sender: PFIZER
  Company Number: US-PFIZER INC-202400099255

PATIENT
  Age: 50 Year
  Sex: Male
  Weight: 102.06 kg

DRUGS (1)
  1. GENOTROPIN [Suspect]
     Active Substance: SOMATROPIN
     Indication: Growth hormone deficiency
     Dosage: 0.2MG DAILY (EVERY NIGHT)
     Dates: start: 202403

REACTIONS (4)
  - Drug dose omission by device [Unknown]
  - Device physical property issue [Unknown]
  - Device leakage [Unknown]
  - Device mechanical issue [Unknown]

NARRATIVE: CASE EVENT DATE: 20240101
